FAERS Safety Report 4763018-5 (Version None)
Quarter: 2005Q3

REPORT INFORMATION
  Report Type: 
  Country: None (occurrence: None)
  Receive Date: 20050907
  Receipt Date: 20050310
  Transmission Date: 20060218
  Serious: Yes (Hospitalization, Other)
  Sender: FDA-Public Use
  Company Number: US-MERCK-0503USA02038

PATIENT
  Age: 84 Year
  Sex: Female
  Weight: 74 kg

DRUGS (2)
  1. VIOXX [Suspect]
     Indication: OSTEOARTHRITIS
     Route: 048
     Dates: start: 19990101, end: 20030301
  2. [THERAPY UNSPECIFIED] [Concomitant]
     Route: 065

REACTIONS (23)
  - ANTIBODY TEST POSITIVE [None]
  - ARTHRALGIA [None]
  - CARDIAC DISORDER [None]
  - CONDITION AGGRAVATED [None]
  - DEPRESSION [None]
  - DIZZINESS [None]
  - DRUG INEFFECTIVE [None]
  - DYSPEPSIA [None]
  - FALL [None]
  - FLATULENCE [None]
  - GAIT DISTURBANCE [None]
  - INJURY [None]
  - LOSS OF CONSCIOUSNESS [None]
  - MYOCARDIAL INFARCTION [None]
  - NO THERAPEUTIC RESPONSE [None]
  - OEDEMA PERIPHERAL [None]
  - PAIN [None]
  - POLYMYALGIA RHEUMATICA [None]
  - POST-TRAUMATIC STRESS DISORDER [None]
  - RENAL DISORDER [None]
  - SICK SINUS SYNDROME [None]
  - SYNCOPE [None]
  - WHITE BLOOD CELL COUNT INCREASED [None]
